FAERS Safety Report 16832001 (Version 1)
Quarter: 2019Q3

REPORT INFORMATION
  Report Type: Spontaneous
  Country: RO (occurrence: RO)
  Receive Date: 20190920
  Receipt Date: 20190920
  Transmission Date: 20191005
  Serious: Yes (Death, Hospitalization, Other)
  Sender: FDA-Public Use
  Company Number: RO-ASTELLAS-2019US036963

PATIENT
  Age: 54 Year
  Sex: Male

DRUGS (1)
  1. TACROLIMUS. [Suspect]
     Active Substance: TACROLIMUS
     Indication: LIVER TRANSPLANT
     Dosage: UNK UNK, UNKNOWN FREQ.
     Route: 065

REACTIONS (7)
  - Cerebrovascular accident [Fatal]
  - Mucormycosis [Unknown]
  - Multiple organ dysfunction syndrome [Fatal]
  - Aspergillus infection [Unknown]
  - Pseudomonas infection [Unknown]
  - Enterococcal infection [Unknown]
  - Escherichia infection [Unknown]
